FAERS Safety Report 7337959-9 (Version None)
Quarter: 2011Q1

REPORT INFORMATION
  Report Type: 
  Country: None (occurrence: None)
  Receive Date: 20110210
  Receipt Date: 20101112
  Transmission Date: 20110831
  Serious: No
  Sender: FDA-Public Use
  Company Number: 1000008346

PATIENT
  Age: 57 Year
  Sex: Female

DRUGS (22)
  1. PROVIGIL [Concomitant]
  2. ARMOUR THYROID (THYROID) (THYROID) [Concomitant]
  3. WELLBUTRIN (BUPROPION) (BUPROPION) [Concomitant]
  4. PROZAC (FLUOXETINE) (FLUOXETINE) [Concomitant]
  5. NEXIUM [Concomitant]
  6. SAVELLA [Suspect]
     Indication: MYOFASCIAL PAIN SYNDROME
     Dosage: 12.5 MG (12.5 MG, 1 IN 1 D), ORAL, 25 MG (12.5 MG, 2 IN 1 D), ORAL, 50 MG (25 MG, 2 IN 1 D), ORAL
     Route: 048
     Dates: start: 20090726, end: 20090727
  7. SAVELLA [Suspect]
     Indication: MYOFASCIAL PAIN SYNDROME
     Dosage: 12.5 MG (12.5 MG, 1 IN 1 D), ORAL, 25 MG (12.5 MG, 2 IN 1 D), ORAL, 50 MG (25 MG, 2 IN 1 D), ORAL
     Route: 048
     Dates: start: 20090728, end: 20090731
  8. SAVELLA [Suspect]
     Indication: MYOFASCIAL PAIN SYNDROME
     Dosage: 12.5 MG (12.5 MG, 1 IN 1 D), ORAL, 25 MG (12.5 MG, 2 IN 1 D), ORAL, 50 MG (25 MG, 2 IN 1 D), ORAL
     Route: 048
     Dates: start: 20090725, end: 20090725
  9. SAVELLA [Suspect]
     Indication: MYOFASCIAL PAIN SYNDROME
     Dosage: 100 MG (50 MG, 2 IN 1 D), ORAL
     Route: 048
     Dates: start: 20090801, end: 20090813
  10. NAPRELAN (NAPROXEN SODIUM) (NAPROXEN SODIUM) [Concomitant]
  11. NIFEDIPINE [Concomitant]
  12. DHEA (PRASTERONE) (PRASTERONE) [Concomitant]
  13. PLAQUENIL (HYDROXYCHLOROQUINE) (HYDROXYCHLOROQUINE) [Concomitant]
  14. PROMETRIUM (PROGESTERONE) (PROGESTERONE) [Concomitant]
  15. KLONOPIN (CLONAZEPAM) (CLONAZEPAM) [Concomitant]
  16. OXYCONTIN (OXYCODONE HCL) (OXYCODONE HCL) [Concomitant]
  17. OXYCODONE HCL [Concomitant]
  18. NAMENDA [Concomitant]
  19. TRENTAL (PENTOXIFYLLINE) (PENTOXIFYLLINE) [Concomitant]
  20. COZAAR [Concomitant]
  21. ESTRADIOL [Concomitant]
  22. CELLCEPT (MYCOPHENOLATE MOFETIL) (MYCOPHENOLATE MOFETIL) [Concomitant]

REACTIONS (5)
  - MYALGIA [None]
  - BLOOD CREATININE INCREASED [None]
  - WEIGHT DECREASED [None]
  - BLOOD SODIUM DECREASED [None]
  - ABDOMINAL PAIN UPPER [None]
